FAERS Safety Report 20750522 (Version 1)
Quarter: 2022Q2

REPORT INFORMATION
  Report Type: Spontaneous
  Country: US (occurrence: None)
  Receive Date: 20220426
  Receipt Date: 20220426
  Transmission Date: 20220721
  Serious: Yes (Hospitalization)
  Sender: FDA-Public Use
  Company Number: None

PATIENT
  Sex: Female

DRUGS (1)
  1. NIVESTYM [Suspect]
     Active Substance: FILGRASTIM-AAFI
     Indication: Agranulocytosis
     Dosage: FREQUENCY : AS DIRECTED;?
     Route: 058
     Dates: start: 20220308

REACTIONS (1)
  - Hospitalisation [None]
